FAERS Safety Report 25756207 (Version 1)
Quarter: 2025Q3

REPORT INFORMATION
  Report Type: Spontaneous
  Country: TW (occurrence: TW)
  Receive Date: 20250903
  Receipt Date: 20250903
  Transmission Date: 20251020
  Serious: Yes (Other)
  Sender: AMGEN
  Company Number: TW-AMGEN-TWNSP2025171259

PATIENT
  Age: 56 Year
  Sex: Female

DRUGS (2)
  1. BEVACIZUMAB [Suspect]
     Active Substance: BEVACIZUMAB
     Indication: Meningioma malignant
     Route: 065
     Dates: start: 202301
  2. TEMOZOLOMIDE [Concomitant]
     Active Substance: TEMOZOLOMIDE
     Indication: Meningioma malignant
     Dates: start: 202301

REACTIONS (5)
  - Intracranial meningioma malignant [Recovering/Resolving]
  - Malignant meningioma metastatic [Unknown]
  - Metastases to lung [Unknown]
  - Lung neoplasm malignant [Unknown]
  - Off label use [Unknown]
